FAERS Safety Report 8852246 (Version 1)
Quarter: 2012Q4

REPORT INFORMATION
  Report Type: Spontaneous
  Country: JP (occurrence: None)
  Receive Date: 20121017
  Receipt Date: 20121017
  Transmission Date: 20130627
  Serious: Yes (Hospitalization)
  Sender: FDA-Public Use
  Company Number: 2012PL000177

PATIENT
  Age: 72 Year
  Sex: Male

DRUGS (2)
  1. AZATHIOPRINE [Suspect]
     Indication: INTERSTITIAL PNEUMONIA
     Dates: start: 2006, end: 2006
  2. PREDNISOLONE [Concomitant]

REACTIONS (4)
  - Interstitial lung disease [None]
  - Condition aggravated [None]
  - Hypersensitivity [None]
  - Pulmonary toxicity [None]
